FAERS Safety Report 6246722-1 (Version None)
Quarter: 2009Q2

REPORT INFORMATION
  Report Type: 
  Country: None (occurrence: None)
  Receive Date: 20090626
  Receipt Date: 20090427
  Transmission Date: 20091009
  Serious: No
  Sender: FDA-Public Use
  Company Number: US-BAYER-200911593BCC

PATIENT
  Age: 3 Year
  Sex: Male

DRUGS (1)
  1. ALEVE (CAPLET) [Suspect]
     Indication: DRUG USE FOR UNKNOWN INDICATION
     Dosage: BIT INTO AND SPIT SOME OUT ONE CAPLET
     Route: 048

REACTIONS (1)
  - NO ADVERSE EVENT [None]
